FAERS Safety Report 17115334 (Version 2)
Quarter: 2019Q4

REPORT INFORMATION
  Report Type: Spontaneous
  Country: US (occurrence: US)
  Receive Date: 20191205
  Receipt Date: 20191231
  Transmission Date: 20200122
  Serious: No
  Sender: FDA-Public Use
  Company Number: US-ALEXION PHARMACEUTICALS INC.-A201917444

PATIENT
  Age: 46 Year
  Sex: Female

DRUGS (15)
  1. ZOLMITRIPTAN. [Concomitant]
     Active Substance: ZOLMITRIPTAN
     Indication: MIGRAINE WITHOUT AURA
  2. ATARAX [Concomitant]
     Active Substance: HYDROXYZINE HYDROCHLORIDE
     Indication: PRURITUS ALLERGIC
     Dosage: 35 MG, TID, PRN
     Route: 048
  3. STADOL [Concomitant]
     Active Substance: BUTORPHANOL TARTRATE
     Indication: HEADACHE
  4. SOLIRIS [Suspect]
     Active Substance: ECULIZUMAB
     Indication: NEUROMYELITIS OPTICA SPECTRUM DISORDER
     Dosage: 1200 MG, Q2W
     Route: 042
  5. SOLIRIS [Suspect]
     Active Substance: ECULIZUMAB
     Dosage: UNK
     Route: 065
     Dates: start: 201903
  6. FIORINAL [Concomitant]
     Active Substance: ASPIRIN\BUTALBITAL\CAFFEINE
     Indication: MIGRAINE WITHOUT AURA
     Dosage: 1 CAPSULE, Q6H, PRN
     Route: 048
     Dates: start: 20191202
  7. ZANAFLEX [Concomitant]
     Active Substance: TIZANIDINE HYDROCHLORIDE
     Indication: MUSCLE SPASMS
     Dosage: 1 AM 2 AT NOON AT NOON 2 AT 4PM AND 3 AT BEDTIME
     Route: 048
     Dates: start: 20191107
  8. PHENERGAN [Concomitant]
     Active Substance: PROMETHAZINE HYDROCHLORIDE
     Indication: NAUSEA
     Dosage: 25 MG, Q 4-6 HRS, PRN
     Route: 048
  9. STADOL [Concomitant]
     Active Substance: BUTORPHANOL TARTRATE
     Indication: MIGRAINE WITHOUT AURA
     Dosage: 1 SPRAY/NOSTRIL, Q 3-4 HRS, PRN
     Route: 045
  10. AMBIEN [Concomitant]
     Active Substance: ZOLPIDEM TARTRATE
     Indication: INSOMNIA
     Dosage: 10 MG, QHS
     Route: 048
     Dates: start: 20191202
  11. DEPAKOTE [Concomitant]
     Active Substance: DIVALPROEX SODIUM
     Indication: MIGRAINE WITHOUT AURA
     Dosage: 500 MG, QD
     Route: 048
     Dates: start: 20191202
  12. ZOLMITRIPTAN. [Concomitant]
     Active Substance: ZOLMITRIPTAN
     Indication: HEADACHE
     Dosage: 1 SPRAY IN 1 NOSTRIL, Q2H PRN
     Route: 045
     Dates: start: 20191202
  13. CLONIDINE. [Concomitant]
     Active Substance: CLONIDINE
     Indication: AUTONOMIC NERVOUS SYSTEM IMBALANCE
     Dosage: 0.2 MG/24 HR, QW
     Route: 062
     Dates: start: 20191202
  14. SOLIRIS [Suspect]
     Active Substance: ECULIZUMAB
     Dosage: UNK
     Route: 065
     Dates: start: 20190207
  15. PHENERGAN [Concomitant]
     Active Substance: PROMETHAZINE HYDROCHLORIDE
     Indication: VOMITING
     Dosage: 25 MG, Q6H, PRN
     Route: 054

REACTIONS (3)
  - Herpes zoster [Recovering/Resolving]
  - Skin ulcer [Recovering/Resolving]
  - Disease recurrence [Recovering/Resolving]

NARRATIVE: CASE EVENT DATE: 20191023
